FAERS Safety Report 8819917 (Version 5)
Quarter: 2013Q2

REPORT INFORMATION
  Report Type: Spontaneous
  Country: US (occurrence: US)
  Receive Date: 20121001
  Receipt Date: 20130521
  Transmission Date: 20140414
  Serious: Yes (Hospitalization, Other)
  Sender: FDA-Public Use
  Company Number: US-009507513-1110USA03277

PATIENT
  Sex: Female
  Weight: 65.31 kg

DRUGS (4)
  1. FOSAMAX [Suspect]
     Indication: OSTEOPOROSIS
     Dosage: 70 MG, UNK
     Route: 048
     Dates: start: 2009, end: 2010
  2. ALENDRONATE SODIUM [Suspect]
     Dosage: 70 MG, UNK
     Route: 048
  3. VITAMIN D (UNSPECIFIED) [Concomitant]
     Indication: OSTEOPOROSIS
  4. CALCIUM (UNSPECIFIED) [Concomitant]
     Indication: OSTEOPOROSIS

REACTIONS (21)
  - Intramedullary rod insertion [Unknown]
  - Intramedullary rod insertion [Unknown]
  - Hemiparesis [Unknown]
  - Salpingo-oophorectomy bilateral [Unknown]
  - Appendicectomy [Unknown]
  - Cholecystectomy [Unknown]
  - Femur fracture [Unknown]
  - Femur fracture [Unknown]
  - Arthropathy [Unknown]
  - Haemorrhagic anaemia [Unknown]
  - Infection [Unknown]
  - Tooth fracture [Unknown]
  - Epistaxis [Unknown]
  - Epistaxis [Unknown]
  - Insomnia [Unknown]
  - Thrombocytopenia [Unknown]
  - Essential tremor [Recovered/Resolved]
  - Haemoglobin decreased [Unknown]
  - Blood urine present [Unknown]
  - Constipation [Recovered/Resolved]
  - Musculoskeletal pain [Unknown]
